FAERS Safety Report 5730356-9 (Version None)
Quarter: 2008Q2

REPORT INFORMATION
  Report Type: 
  Country: None (occurrence: None)
  Receive Date: 20080430
  Receipt Date: 20080215
  Transmission Date: 20081010
  Serious: No
  Sender: FDA-Public Use
  Company Number: 2008-US-000287

PATIENT
  Age: 6 Year
  Sex: Female
  Weight: 49.9 kg

DRUGS (2)
  1. INCRELEX [Suspect]
     Indication: PRADER-WILLI SYNDROME
     Dosage: 41 UT, BID, SUBCUTANEOUS
     Route: 058
     Dates: start: 20080115, end: 20080116
  2. ERGOCALCIFEROL (ERGOCALCIFEROL) [Concomitant]

REACTIONS (2)
  - INJECTION SITE BRUISING [None]
  - INJECTION SITE PAIN [None]
